FAERS Safety Report 13735807 (Version 1)
Quarter: 2017Q3

REPORT INFORMATION
  Report Type: Spontaneous
  Country: US (occurrence: US)
  Receive Date: 20170707
  Receipt Date: 20170707
  Transmission Date: 20171127
  Serious: Yes (Other)
  Sender: FDA-Public Use
  Company Number: None

PATIENT
  Age: 72 Year
  Sex: Male

DRUGS (1)
  1. ZYTIGA [Suspect]
     Active Substance: ABIRATERONE ACETATE
     Indication: PROSTATE CANCER
     Dosage: DOSE - 4X250MG - ONCE A DAY - PO
     Route: 048
     Dates: start: 20170608

REACTIONS (3)
  - Disturbance in attention [None]
  - Amnesia [None]
  - Mood swings [None]

NARRATIVE: CASE EVENT DATE: 201706
